FAERS Safety Report 24036295 (Version 2)
Quarter: 2025Q1

REPORT INFORMATION
  Report Type: Spontaneous
  Country: US (occurrence: US)
  Receive Date: 20240701
  Receipt Date: 20250324
  Transmission Date: 20250408
  Serious: Yes (Other)
  Sender: MYLAN
  Company Number: US-MYLANLABS-2024M1058483

PATIENT
  Age: 66 Year
  Sex: Female
  Weight: 68.04 kg

DRUGS (7)
  1. LEVOTHYROXINE SODIUM [Suspect]
     Active Substance: LEVOTHYROXINE SODIUM
     Indication: Product used for unknown indication
  2. LEVOTHYROXINE SODIUM [Suspect]
     Active Substance: LEVOTHYROXINE SODIUM
     Dates: start: 20231107, end: 20240405
  3. MAGNESIUM GLYCINATE [Concomitant]
     Active Substance: MAGNESIUM GLYCINATE
  4. OMEGA-3 FATTY ACIDS [Concomitant]
     Active Substance: OMEGA-3 FATTY ACIDS
  5. Dha/epa [Concomitant]
  6. VITAMINS [Concomitant]
     Active Substance: VITAMINS
  7. PROBIOTICS NOS [Concomitant]
     Active Substance: PROBIOTICS NOS

REACTIONS (21)
  - Dementia Alzheimer^s type [Unknown]
  - Autoimmune disorder [Unknown]
  - Chronic leukaemia [Unknown]
  - Hypothermia [Unknown]
  - Fatigue [Recovered/Resolved]
  - Heart rate decreased [Recovered/Resolved]
  - Joint dislocation [Recovered/Resolved]
  - Muscular weakness [Recovered/Resolved]
  - Oedema peripheral [Recovered/Resolved]
  - Periorbital swelling [Recovered/Resolved]
  - Musculoskeletal stiffness [Unknown]
  - Amnesia [Unknown]
  - Weight increased [Recovered/Resolved]
  - Decreased appetite [Unknown]
  - Trichorrhexis [Unknown]
  - Alopecia [Unknown]
  - Madarosis [Recovered/Resolved]
  - Dysphonia [Recovered/Resolved]
  - Drug ineffective [Recovered/Resolved]
  - Therapeutic response changed [Unknown]
  - Product substitution issue [Unknown]

NARRATIVE: CASE EVENT DATE: 20240101
